FAERS Safety Report 20383434 (Version 6)
Quarter: 2022Q1

REPORT INFORMATION
  Report Type: Report from Study
  Country: RU (occurrence: RU)
  Receive Date: 20220127
  Receipt Date: 20220314
  Transmission Date: 20220424
  Serious: Yes (Life-Threatening, Other)
  Sender: FDA-Public Use
  Company Number: RU-SERVIER-S22000487

PATIENT

DRUGS (30)
  1. PEGASPARGASE [Suspect]
     Active Substance: PEGASPARGASE
     Indication: B-cell type acute leukaemia
     Dosage: 1525 U (2500 U/M?), ON DAY 3 OF THE INDUCTION PHASE
     Route: 042
     Dates: start: 20211228, end: 20211228
  2. DEXAMETHASONE SODIUM PHOSPHATE [Suspect]
     Active Substance: DEXAMETHASONE SODIUM PHOSPHATE
     Indication: B-cell type acute leukaemia
     Dosage: 0.5 MG, QD
     Route: 048
     Dates: start: 20211224, end: 20211224
  3. DEXAMETHASONE SODIUM PHOSPHATE [Suspect]
     Active Substance: DEXAMETHASONE SODIUM PHOSPHATE
     Dosage: 2 MG, QD
     Route: 051
     Dates: start: 20211224, end: 20211224
  4. DEXAMETHASONE SODIUM PHOSPHATE [Suspect]
     Active Substance: DEXAMETHASONE SODIUM PHOSPHATE
     Dosage: 1 MG, QD
     Route: 048
     Dates: start: 20211225, end: 20211225
  5. DEXAMETHASONE SODIUM PHOSPHATE [Suspect]
     Active Substance: DEXAMETHASONE SODIUM PHOSPHATE
     Dosage: 2 MG, QD
     Route: 048
     Dates: start: 20211226, end: 20211226
  6. DEXAMETHASONE SODIUM PHOSPHATE [Suspect]
     Active Substance: DEXAMETHASONE SODIUM PHOSPHATE
     Dosage: 2 MG, QD
     Route: 048
     Dates: start: 20211227, end: 20211227
  7. DEXAMETHASONE SODIUM PHOSPHATE [Suspect]
     Active Substance: DEXAMETHASONE SODIUM PHOSPHATE
     Dosage: 2 MG, QD
     Route: 051
     Dates: start: 20211227, end: 20211227
  8. DEXAMETHASONE SODIUM PHOSPHATE [Suspect]
     Active Substance: DEXAMETHASONE SODIUM PHOSPHATE
     Dosage: 4 MG, QD
     Route: 051
     Dates: start: 20211228, end: 20220112
  9. DEXAMETHASONE SODIUM PHOSPHATE [Suspect]
     Active Substance: DEXAMETHASONE SODIUM PHOSPHATE
     Dosage: 1.5 MG, QD
     Route: 037
     Dates: start: 20211230, end: 20211230
  10. DEXAMETHASONE SODIUM PHOSPHATE [Suspect]
     Active Substance: DEXAMETHASONE SODIUM PHOSPHATE
     Dosage: 1.5 MG, QD
     Route: 037
     Dates: start: 20220106, end: 20220106
  11. CYTARABINE [Suspect]
     Active Substance: CYTARABINE
     Indication: B-cell type acute leukaemia
     Dosage: 26 MG, QD
     Route: 037
     Dates: start: 20211224, end: 20211224
  12. CYTARABINE [Suspect]
     Active Substance: CYTARABINE
     Dosage: 26 MG, QD
     Route: 037
     Dates: start: 20211230, end: 20211230
  13. CYTARABINE [Suspect]
     Active Substance: CYTARABINE
     Dosage: 26 MG, QD
     Route: 037
     Dates: start: 20220106, end: 20220106
  14. METHOTREXATE SODIUM [Suspect]
     Active Substance: METHOTREXATE SODIUM
     Indication: B-cell type acute leukaemia
     Dosage: 10 MG, QD
     Route: 037
     Dates: start: 20211224, end: 20211224
  15. METHOTREXATE SODIUM [Suspect]
     Active Substance: METHOTREXATE SODIUM
     Dosage: 10 MG, QD
     Route: 037
     Dates: start: 20211230, end: 20211230
  16. METHOTREXATE SODIUM [Suspect]
     Active Substance: METHOTREXATE SODIUM
     Dosage: 10 MG, QD
     Route: 037
     Dates: start: 20220106, end: 20220106
  17. VINCRISTINE SULFATE [Suspect]
     Active Substance: VINCRISTINE SULFATE
     Indication: B-cell type acute leukaemia
     Dosage: 0.9 MG, QD
     Route: 051
     Dates: start: 20211231, end: 20211231
  18. DAUNORUBICIN HYDROCHLORIDE [Suspect]
     Active Substance: DAUNORUBICIN HYDROCHLORIDE
     Indication: B-cell type acute leukaemia
     Dosage: 28 MG, QD
     Route: 051
     Dates: start: 20211231, end: 20211231
  19. TN UNSPECIFIED [Concomitant]
     Indication: B-cell type acute leukaemia
     Dosage: UNK (REQUESTED)
     Route: 065
  20. TN UNSPECIFIED [Concomitant]
     Indication: Product used for unknown indication
     Dosage: 500 MG, BID
     Route: 051
     Dates: start: 20211209, end: 20220104
  21. TN UNSPECIFIED [Concomitant]
     Indication: Clostridial infection
     Dosage: 100 MG, TID
     Route: 051
     Dates: start: 20211213, end: 20220111
  22. TN UNSPECIFIED [Concomitant]
     Indication: Prophylaxis
  23. TN UNSPECIFIED [Concomitant]
     Indication: Antifungal prophylaxis
     Dosage: 150 MG, TID
     Route: 051
     Dates: start: 20211217, end: 20220130
  24. TN UNSPECIFIED [Concomitant]
     Indication: Pneumonia
  25. TN UNSPECIFIED [Concomitant]
     Indication: Antifungal prophylaxis
     Dosage: 150 MG, TID
     Route: 051
     Dates: start: 20211217, end: 20220207
  26. TN UNSPECIFIED [Concomitant]
     Indication: Pneumonia
  27. TN UNSPECIFIED [Concomitant]
     Indication: Supportive care
     Dosage: 500 ML, QD
     Route: 051
     Dates: start: 20211224, end: 20220120
  28. TN UNSPECIFIED [Concomitant]
     Indication: Pneumocystis jirovecii pneumonia
     Dosage: 720 MG, 1X/WEEK
     Route: 048
     Dates: start: 20211225, end: 20220117
  29. TN UNSPECIFIED [Concomitant]
     Indication: Prophylaxis
  30. TN UNSPECIFIED [Concomitant]
     Indication: Gastritis prophylaxis
     Dosage: 5 MG, BID
     Route: 051
     Dates: start: 20211227, end: 20220118

REACTIONS (7)
  - Oedematous pancreatitis [Recovered/Resolved]
  - Antithrombin III decreased [Recovered/Resolved]
  - White blood cell count decreased [Recovered/Resolved]
  - Protein S decreased [Recovered/Resolved]
  - Blood fibrinogen decreased [Recovered/Resolved]
  - Gastroenteritis norovirus [Recovered/Resolved]
  - Cholestasis [Recovered/Resolved]

NARRATIVE: CASE EVENT DATE: 20220102
